FAERS Safety Report 24325848 (Version 1)
Quarter: 2024Q3

REPORT INFORMATION
  Report Type: Spontaneous
  Country: IN (occurrence: IN)
  Receive Date: 20240917
  Receipt Date: 20240917
  Transmission Date: 20241017
  Serious: Yes (Hospitalization)
  Sender: HETERO
  Company Number: IN-HETERO-HET2024IN03103

PATIENT
  Age: 70 Year
  Sex: Female

DRUGS (3)
  1. ROSUVASTATIN [Suspect]
     Active Substance: ROSUVASTATIN\ROSUVASTATIN CALCIUM
     Indication: Dyslipidaemia
     Dosage: 40 MILLIGRAM, QD
     Route: 065
  2. ASPIRIN [Concomitant]
     Active Substance: ASPIRIN
     Indication: Product used for unknown indication
     Dosage: 75 MILLIGRAM
     Route: 065
  3. TICAGRELOR [Concomitant]
     Active Substance: TICAGRELOR
     Indication: Product used for unknown indication
     Dosage: 90 MILLIGRAM, BID
     Route: 065

REACTIONS (3)
  - Liver injury [Recovered/Resolved]
  - Myopathy [Recovered/Resolved]
  - Acute kidney injury [Recovered/Resolved]
